FAERS Safety Report 7525849-8 (Version None)
Quarter: 2011Q2

REPORT INFORMATION
  Report Type: 
  Country: None (occurrence: None)
  Receive Date: 20110606
  Receipt Date: 20110519
  Transmission Date: 20111010
  Serious: Yes (Hospitalization)
  Sender: FDA-Public Use
  Company Number: A0841992A

PATIENT
  Age: 65 Year
  Sex: Female
  Weight: 92.7 kg

DRUGS (7)
  1. LEXAPRO [Concomitant]
  2. METFORMIN HCL [Concomitant]
  3. CLONIDINE [Concomitant]
  4. INSULIN [Concomitant]
  5. CATAPRES [Concomitant]
  6. AVANDIA [Suspect]
     Dosage: 4MG TWICE PER DAY
     Route: 048
     Dates: start: 19991122, end: 20060617
  7. DETROL [Concomitant]

REACTIONS (6)
  - CORONARY ARTERY DISEASE [None]
  - PNEUMONIA [None]
  - CAROTID ARTERY OCCLUSION [None]
  - ATRIAL FIBRILLATION [None]
  - CARDIAC FAILURE CONGESTIVE [None]
  - MYOCARDIAL INFARCTION [None]
